FAERS Safety Report 12887108 (Version 14)
Quarter: 2017Q4

REPORT INFORMATION
  Report Type: Spontaneous
  Country: FI (occurrence: FI)
  Receive Date: 20161026
  Receipt Date: 20171017
  Transmission Date: 20180320
  Serious: Yes (Hospitalization)
  Sender: FDA-Public Use
  Company Number: FI-SA-2016SA192459

PATIENT
  Age: 36 Year
  Sex: Female

DRUGS (3)
  1. MIRTAZAPINE. [Concomitant]
     Active Substance: MIRTAZAPINE
  2. LEMTRADA [Suspect]
     Active Substance: ALEMTUZUMAB
     Indication: RELAPSING-REMITTING MULTIPLE SCLEROSIS
     Route: 041
     Dates: start: 20151019, end: 20151023
  3. THYROXIN [Concomitant]
     Active Substance: LEVOTHYROXINE
     Indication: HYPOTHYROIDISM

REACTIONS (9)
  - Autoimmune hepatitis [Recovering/Resolving]
  - Blood thromboplastin [Recovered/Resolved]
  - Ascites [Recovering/Resolving]
  - Alanine aminotransferase increased [Recovering/Resolving]
  - Fatigue [Recovering/Resolving]
  - Leukopenia [Recovered/Resolved]
  - Hepatic failure [Recovering/Resolving]
  - Aspartate aminotransferase increased [Recovering/Resolving]
  - Hepatotoxicity [Recovering/Resolving]

NARRATIVE: CASE EVENT DATE: 20161019
